FAERS Safety Report 24689175 (Version 1)
Quarter: 2024Q4

REPORT INFORMATION
  Report Type: Spontaneous
  Country: GB (occurrence: GB)
  Receive Date: 20241203
  Receipt Date: 20241203
  Transmission Date: 20250115
  Serious: Yes (Other)
  Sender: TEVA
  Company Number: None

PATIENT
  Sex: Female

DRUGS (1)
  1. LEVOTHYROXINE [Suspect]
     Active Substance: LEVOTHYROXINE
     Indication: Congenital hypothyroidism
     Dosage: 300MG
     Route: 065
     Dates: start: 20080810

REACTIONS (5)
  - Vomiting [Recovering/Resolving]
  - Dry skin [Not Recovered/Not Resolved]
  - Abdominal discomfort [Recovering/Resolving]
  - Migraine [Recovering/Resolving]
  - Medication error [Unknown]

NARRATIVE: CASE EVENT DATE: 20230103
